FAERS Safety Report 7737149-1 (Version None)
Quarter: 2011Q3

REPORT INFORMATION
  Report Type: 
  Country: None (occurrence: None)
  Receive Date: 20110908
  Receipt Date: 20110807
  Transmission Date: 20111222
  Serious: No
  Sender: FDA-Public Use
  Company Number: US-BAYER-2011-072058

PATIENT

DRUGS (2)
  1. ALEVE (CAPLET) [Suspect]
     Dosage: 660 MG, UNK
     Route: 048
  2. IBUPROFEN [Suspect]
     Dosage: 1 DF, UNK
     Route: 048

REACTIONS (1)
  - ASTHENIA [None]
